FAERS Safety Report 6454240-0 (Version None)
Quarter: 2009Q4

REPORT INFORMATION
  Report Type: 
  Country: None (occurrence: None)
  Receive Date: 20091102
  Receipt Date: 20080815
  Transmission Date: 20100525
  Serious: Yes (Other)
  Sender: FDA-Public Use
  Company Number: AECAN200800173

PATIENT
  Age: 22 Year
  Sex: Male

DRUGS (1)
  1. GAMUNEX [Suspect]
     Indication: SYSTEMIC LUPUS ERYTHEMATOSUS
     Dosage: 285 GM; TOTAL; IV
     Route: 042

REACTIONS (5)
  - AUTOANTIBODY POSITIVE [None]
  - BLOOD ALBUMIN DECREASED [None]
  - COOMBS DIRECT TEST POSITIVE [None]
  - HAEMOGLOBIN DECREASED [None]
  - HAEMOLYSIS [None]
